FAERS Safety Report 18849204 (Version 1)
Quarter: 2021Q1

REPORT INFORMATION
  Report Type: Spontaneous
  Country: FR (occurrence: FR)
  Receive Date: 20210205
  Receipt Date: 20210205
  Transmission Date: 20210419
  Serious: Yes (Hospitalization)
  Sender: FDA-Public Use
  Company Number: FR-SUN PHARMACEUTICAL INDUSTRIES LTD-2021RR-279068

PATIENT
  Age: 66 Year
  Sex: Female

DRUGS (4)
  1. VITAMIN B6 [Concomitant]
     Active Substance: PYRIDOXINE HYDROCHLORIDE
     Indication: PRODUCT USED FOR UNKNOWN INDICATION
     Dosage: ()
     Route: 042
     Dates: start: 20201230, end: 20210102
  2. ESOMEPRAZOLE SUN [Suspect]
     Active Substance: ESOMEPRAZOLE SODIUM
     Indication: PEPTIC ULCER
     Route: 042
     Dates: start: 20201229, end: 20210102
  3. VITAMINE B1 [Concomitant]
     Active Substance: THIAMINE HYDROCHLORIDE
     Indication: PRODUCT USED FOR UNKNOWN INDICATION
     Dosage: ()
     Route: 042
     Dates: start: 20201230, end: 20210102
  4. HEPARINE SODIQUE [Concomitant]
     Active Substance: HEPARIN SODIUM
     Indication: PULMONARY EMBOLISM
     Dosage: ()
     Route: 042
     Dates: start: 20201231, end: 20210102

REACTIONS (2)
  - Thrombophlebitis superficial [Not Recovered/Not Resolved]
  - Infusion site inflammation [Not Recovered/Not Resolved]

NARRATIVE: CASE EVENT DATE: 20210104
